FAERS Safety Report 9513795 (Version 1)
Quarter: 2013Q3

REPORT INFORMATION
  Report Type: Spontaneous
  Country: JP (occurrence: JP)
  Receive Date: 20130910
  Receipt Date: 20130910
  Transmission Date: 20140515
  Serious: Yes (Hospitalization, Other)
  Sender: FDA-Public Use
  Company Number: JP-ABBOTT-13P-087-1142460-00

PATIENT
  Age: 36 Year
  Sex: Male

DRUGS (25)
  1. NORVIR [Suspect]
     Indication: HIV INFECTION
     Route: 048
     Dates: start: 20070410, end: 20090407
  2. NORVIR [Suspect]
     Route: 048
     Dates: start: 20090408, end: 20090512
  3. NORVIR [Suspect]
     Route: 048
     Dates: start: 20090513, end: 20120229
  4. NORVIR [Suspect]
     Route: 048
     Dates: start: 20120301
  5. LEXIVA [Suspect]
     Indication: HIV INFECTION
     Route: 048
     Dates: start: 20070410, end: 20090407
  6. LEXIVA [Suspect]
     Route: 048
     Dates: start: 20090408, end: 20090512
  7. LEXIVA [Suspect]
     Route: 048
     Dates: start: 20090513
  8. TRUVADA [Suspect]
     Indication: HIV INFECTION
     Route: 048
     Dates: start: 20070410
  9. RIBAVIRIN [Concomitant]
     Indication: PRODUCT USED FOR UNKNOWN INDICATION
     Dates: start: 20020423, end: 20090708
  10. RIBAVIRIN [Concomitant]
     Dates: start: 20090511
  11. MENATETRENONE [Concomitant]
     Indication: PRODUCT USED FOR UNKNOWN INDICATION
     Dates: start: 20040906
  12. URSODEOXYCHOLIC ACID [Concomitant]
     Indication: PRODUCT USED FOR UNKNOWN INDICATION
     Dates: start: 20041105, end: 20070521
  13. URSODEOXYCHOLIC ACID [Concomitant]
     Dates: start: 20070522
  14. AMINOLEBAN EN [Concomitant]
     Indication: PRODUCT USED FOR UNKNOWN INDICATION
     Dates: start: 20071029, end: 20080106
  15. AMINOLEBAN EN [Concomitant]
     Dates: start: 20090108, end: 20090825
  16. FACTOR VIII INHIBITOR BYPASSING FRACTION [Concomitant]
     Indication: PRODUCT USED FOR UNKNOWN INDICATION
  17. SODIUM RABEPRAZOLE [Concomitant]
     Indication: PRODUCT USED FOR UNKNOWN INDICATION
     Dates: start: 20080408
  18. LOXOPROFEN [Concomitant]
     Indication: PRODUCT USED FOR UNKNOWN INDICATION
     Dates: start: 200204
  19. PROTEIN SUPPLEMENTS [Concomitant]
     Indication: PRODUCT USED FOR UNKNOWN INDICATION
     Dates: start: 20111024, end: 20121213
  20. TRAMACET [Concomitant]
     Indication: PRODUCT USED FOR UNKNOWN INDICATION
     Dates: start: 20130308, end: 20130314
  21. NOVAMIN [Concomitant]
     Indication: PRODUCT USED FOR UNKNOWN INDICATION
     Dates: start: 20130308, end: 20130314
  22. AMIPHARGEN P [Concomitant]
     Indication: PRODUCT USED FOR UNKNOWN INDICATION
     Dates: start: 20110422, end: 20120410
  23. AMIPHARGEN P [Concomitant]
     Dates: start: 20120413
  24. NEOPHAGEN [Concomitant]
     Dates: start: 20060626, end: 20110418
  25. LEVOFLOXACIN [Concomitant]
     Indication: PRODUCT USED FOR UNKNOWN INDICATION
     Dates: start: 20120608, end: 20120617

REACTIONS (15)
  - Hyperbilirubinaemia [Not Recovered/Not Resolved]
  - Haemophilic arthropathy [Recovering/Resolving]
  - Staphylococcal skin infection [Recovered/Resolved]
  - Subcutaneous abscess [Recovered/Resolved]
  - Rib fracture [Recovering/Resolving]
  - Road traffic accident [Recovering/Resolving]
  - Contusion [Recovering/Resolving]
  - Haematoma [Recovering/Resolving]
  - Activities of daily living impaired [Recovering/Resolving]
  - Pain [Recovering/Resolving]
  - Abdominal pain [Not Recovered/Not Resolved]
  - Gastritis [Not Recovered/Not Resolved]
  - Duodenitis [Not Recovered/Not Resolved]
  - Cholelithiasis [Not Recovered/Not Resolved]
  - Gallbladder disorder [Not Recovered/Not Resolved]
